FAERS Safety Report 19355036 (Version 2)
Quarter: 2021Q3

REPORT INFORMATION
  Report Type: Spontaneous
  Country: IT (occurrence: IT)
  Receive Date: 20210602
  Receipt Date: 20210702
  Transmission Date: 20211014
  Serious: Yes (Life-Threatening, Hospitalization)
  Sender: FDA-Public Use
  Company Number: IT-TEVA-2021-IT-1917325

PATIENT
  Age: 3 Year
  Sex: Male

DRUGS (15)
  1. ENOXAPARIN SODIUM. [Concomitant]
     Active Substance: ENOXAPARIN SODIUM
     Indication: ANTICOAGULANT THERAPY
     Route: 065
  2. PIPERACILLIN/TAZOBACTAM [Suspect]
     Active Substance: PIPERACILLIN SODIUM\TAZOBACTAM SODIUM
     Indication: SEPTIC SHOCK
     Route: 065
  3. AMIKACIN. [Suspect]
     Active Substance: AMIKACIN
     Indication: PNEUMONIA NECROTISING
  4. VANCOMYCIN [Suspect]
     Active Substance: VANCOMYCIN
     Indication: SEPTIC SHOCK
     Route: 065
  5. AMIKACIN. [Suspect]
     Active Substance: AMIKACIN
     Indication: SEPTIC SHOCK
     Route: 065
  6. PIPERACILLIN/TAZOBACTAM [Suspect]
     Active Substance: PIPERACILLIN SODIUM\TAZOBACTAM SODIUM
     Indication: STAPHYLOCOCCAL INFECTION
  7. GENTAMICIN. [Concomitant]
     Active Substance: GENTAMICIN
     Indication: EVIDENCE BASED TREATMENT
     Route: 065
  8. AMIKACIN. [Suspect]
     Active Substance: AMIKACIN
     Indication: STAPHYLOCOCCAL INFECTION
  9. VANCOMYCIN [Suspect]
     Active Substance: VANCOMYCIN
     Indication: PNEUMONIA NECROTISING
  10. NITRIC OXIDE. [Concomitant]
     Active Substance: NITRIC OXIDE
     Indication: PRODUCT USED FOR UNKNOWN INDICATION
     Route: 065
  11. CLINDAMYCIN. [Suspect]
     Active Substance: CLINDAMYCIN
     Indication: STAPHYLOCOCCAL INFECTION
  12. CLINDAMYCIN. [Suspect]
     Active Substance: CLINDAMYCIN
     Indication: PNEUMONIA NECROTISING
  13. PIPERACILLIN/TAZOBACTAM [Suspect]
     Active Substance: PIPERACILLIN SODIUM\TAZOBACTAM SODIUM
     Indication: PNEUMONIA NECROTISING
  14. VANCOMYCIN [Suspect]
     Active Substance: VANCOMYCIN
     Indication: STAPHYLOCOCCAL INFECTION
  15. CLINDAMYCIN. [Suspect]
     Active Substance: CLINDAMYCIN
     Indication: SEPTIC SHOCK
     Route: 065

REACTIONS (1)
  - Drug ineffective [Unknown]
